FAERS Safety Report 7103917-2 (Version None)
Quarter: 2010Q4

REPORT INFORMATION
  Report Type: 
  Country: None (occurrence: None)
  Receive Date: 20101115
  Receipt Date: 20100507
  Transmission Date: 20110411
  Serious: No
  Sender: FDA-Public Use
  Company Number: US-ALLERGAN-0916976US

PATIENT
  Age: 42 Year
  Sex: Female

DRUGS (2)
  1. BOTOX COSMETIC [Suspect]
     Indication: SKIN WRINKLING
     Dosage: 30 UNITS, SINGLE
     Route: 030
     Dates: start: 20091207, end: 20091207
  2. BOTOX COSMETIC [Suspect]
     Dosage: 20 UNK, UNK
     Dates: start: 20090711, end: 20090711

REACTIONS (1)
  - EYELID PTOSIS [None]
